FAERS Safety Report 15553335 (Version 3)
Quarter: 2020Q3

REPORT INFORMATION
  Report Type: Spontaneous
  Country: DE (occurrence: DE)
  Receive Date: 20181026
  Receipt Date: 20200703
  Transmission Date: 20201102
  Serious: Yes (Hospitalization, Other)
  Sender: FDA-Public Use
  Company Number: DE-BRISTOL-MYERS SQUIBB COMPANY-BMS-2018-098061

PATIENT
  Age: 53 Year
  Sex: Female
  Weight: 74 kg

DRUGS (1)
  1. NIVOLUMAB [Suspect]
     Active Substance: NIVOLUMAB
     Indication: MALIGNANT MELANOMA
     Dosage: 220 MG, Q2WK
     Route: 042
     Dates: start: 20180302, end: 20180928

REACTIONS (6)
  - Brain stem infarction [Recovered/Resolved]
  - Urinary tract infection [Unknown]
  - Hypertriglyceridaemia [Unknown]
  - Intentional product use issue [Unknown]
  - Cerebral infarction [Unknown]
  - Hypercholesterolaemia [Unknown]

NARRATIVE: CASE EVENT DATE: 201810
